FAERS Safety Report 25511150 (Version 1)
Quarter: 2025Q3

REPORT INFORMATION
  Report Type: Spontaneous
  Country: US (occurrence: US)
  Receive Date: 20250703
  Receipt Date: 20250703
  Transmission Date: 20251021
  Serious: No
  Sender: RADIUS PHARM
  Company Number: US-RADIUS HEALTH INC.-2024US006385

PATIENT
  Age: 66 Year
  Sex: Female

DRUGS (3)
  1. TYMLOS [Suspect]
     Active Substance: ABALOPARATIDE
     Indication: Osteoporosis
     Route: 058
     Dates: start: 202311
  2. TYMLOS [Suspect]
     Active Substance: ABALOPARATIDE
     Route: 058
     Dates: start: 202401
  3. OZEMPIC [Suspect]
     Active Substance: SEMAGLUTIDE
     Indication: Product used for unknown indication
     Dates: start: 202402

REACTIONS (3)
  - Injection site bruising [Unknown]
  - Nausea [Unknown]
  - Alopecia [Unknown]

NARRATIVE: CASE EVENT DATE: 20240501
